FAERS Safety Report 20330745 (Version 4)
Quarter: 2022Q1

REPORT INFORMATION
  Report Type: Spontaneous
  Country: JP (occurrence: JP)
  Receive Date: 20220113
  Receipt Date: 20220324
  Transmission Date: 20220423
  Serious: Yes (Death, Hospitalization, Other)
  Sender: FDA-Public Use
  Company Number: JP-BRISTOL-MYERS SQUIBB COMPANY-BMS-2021-116964

PATIENT
  Age: 69 Year
  Sex: Female
  Weight: 57 kg

DRUGS (2)
  1. YERVOY [Suspect]
     Active Substance: IPILIMUMAB
     Indication: Non-small cell lung cancer recurrent
     Dosage: 60 MILLIGRAM
     Route: 041
     Dates: start: 20210907
  2. OPDIVO [Suspect]
     Active Substance: NIVOLUMAB
     Indication: Non-small cell lung cancer recurrent
     Dosage: 360 MILLIGRAM
     Route: 041
     Dates: start: 20210907

REACTIONS (4)
  - Organising pneumonia [Fatal]
  - Malignant neoplasm progression [Fatal]
  - Immune-mediated thyroiditis [Recovering/Resolving]
  - Skin disorder [Recovering/Resolving]

NARRATIVE: CASE EVENT DATE: 20211001
